FAERS Safety Report 16062614 (Version 2)
Quarter: 2019Q2

REPORT INFORMATION
  Report Type: Spontaneous
  Country: AU (occurrence: AU)
  Receive Date: 20190312
  Receipt Date: 20190403
  Transmission Date: 20190711
  Serious: Yes (Death, Life-Threatening)
  Sender: FDA-Public Use
  Company Number: AU-ROCHE-2281933

PATIENT
  Age: 14 Year
  Sex: Male
  Weight: 57.3 kg

DRUGS (14)
  1. BRINCIDOFOVIR [Suspect]
     Active Substance: BRINCIDOFOVIR
     Indication: ADENOVIRUS INFECTION
     Dosage: 10 MG/ML
     Route: 048
     Dates: start: 20180518, end: 20180612
  2. AMBISOME [Suspect]
     Active Substance: AMPHOTERICIN B
     Indication: SCEDOSPORIUM INFECTION
     Route: 042
  3. VORICONAZOLE. [Suspect]
     Active Substance: VORICONAZOLE
     Indication: SINUSITIS
     Route: 048
  4. VORICONAZOLE. [Suspect]
     Active Substance: VORICONAZOLE
     Indication: SCEDOSPORIUM INFECTION
  5. BACTRIM [Suspect]
     Active Substance: SULFAMETHOXAZOLE\TRIMETHOPRIM
     Indication: ANTIFUNGAL PROPHYLAXIS
     Route: 048
  6. PREDNISOLONE. [Suspect]
     Active Substance: PREDNISOLONE
     Indication: ADRENAL INSUFFICIENCY
     Route: 048
  7. CYMEVENE [Suspect]
     Active Substance: GANCICLOVIR
     Indication: CYTOMEGALOVIRUS INFECTION
     Route: 042
  8. FOSCARNET [Suspect]
     Active Substance: FOSCARNET
     Indication: CYTOMEGALOVIRUS INFECTION
     Route: 042
  9. CYMEVENE [Suspect]
     Active Substance: GANCICLOVIR
     Route: 042
  10. BACTRIM [Suspect]
     Active Substance: SULFAMETHOXAZOLE\TRIMETHOPRIM
     Route: 048
  11. CICLOSPORINE [Suspect]
     Active Substance: CYCLOSPORINE
     Indication: GRAFT VERSUS HOST DISEASE
     Route: 042
  12. BRINCIDOFOVIR [Suspect]
     Active Substance: BRINCIDOFOVIR
     Dosage: 10 MG/ML
     Route: 048
     Dates: start: 20180701, end: 20180809
  13. FOSCARNET [Suspect]
     Active Substance: FOSCARNET
     Route: 042
  14. CIDOFOVIR. [Concomitant]
     Active Substance: CIDOFOVIR
     Route: 042

REACTIONS (3)
  - Scedosporium infection [Fatal]
  - Hepatic failure [Not Recovered/Not Resolved]
  - Pancytopenia [Not Recovered/Not Resolved]

NARRATIVE: CASE EVENT DATE: 20180620
